FAERS Safety Report 5301451-3 (Version None)
Quarter: 2007Q2

REPORT INFORMATION
  Report Type: 
  Country: None (occurrence: None)
  Receive Date: 20070418
  Receipt Date: 20070409
  Transmission Date: 20071010
  Serious: Yes (Other)
  Sender: FDA-Public Use
  Company Number: US-PFIZER INC-2006155224

PATIENT
  Age: 80 Year
  Sex: Male
  Weight: 29.9 kg

DRUGS (7)
  1. TIKOSYN [Suspect]
     Indication: ATRIAL FIBRILLATION
  2. LISINOPRIL [Concomitant]
     Dosage: TEXT:EVERY EVENING
  3. FOLIC ACID [Concomitant]
     Dosage: DAILY DOSE:1MG-TEXT:EVERY MORNING
  4. ACETYLSALICYLIC ACID SRT [Concomitant]
     Dosage: DAILY DOSE:81MG-TEXT:EVERY MORNING
  5. COUMADIN [Concomitant]
     Dosage: DAILY DOSE:7.5MG-TEXT:IN THE AFTERNOON
  6. TERAZOSIN HCL [Concomitant]
  7. SOTALOL HYDROCHLORIDE [Concomitant]

REACTIONS (5)
  - ATRIAL FIBRILLATION [None]
  - ATRIAL FLUTTER [None]
  - DIZZINESS [None]
  - FAECES PALE [None]
  - VISION BLURRED [None]
